FAERS Safety Report 4691795-0 (Version None)
Quarter: 2005Q2

REPORT INFORMATION
  Report Type: 
  Country: None (occurrence: None)
  Receive Date: 20050615
  Receipt Date: 20050615
  Transmission Date: 20051028
  Serious: Yes (Other)
  Sender: FDA-Public Use
  Company Number: None

PATIENT
  Age: 59 Year
  Sex: Female
  Weight: 68.0396 kg

DRUGS (3)
  1. ENBREL [Suspect]
     Indication: PSORIASIS
     Dosage: 50MG   BIW   SUBCUTANEO
     Route: 058
     Dates: start: 20050301, end: 20050325
  2. CALCIUM SUPPLEMENTS [Concomitant]
  3. ESTROGEN [Concomitant]

REACTIONS (1)
  - DYSPNOEA [None]
